FAERS Safety Report 9382226 (Version 1)
Quarter: 2013Q3

REPORT INFORMATION
  Report Type: Spontaneous
  Country: BR (occurrence: BR)
  Receive Date: 20130703
  Receipt Date: 20130703
  Transmission Date: 20140515
  Serious: Yes (Other)
  Sender: FDA-Public Use
  Company Number: BR-AMGEN-BRASP2013036099

PATIENT
  Age: 54 Year
  Sex: Female
  Weight: 61 kg

DRUGS (4)
  1. ENBREL [Suspect]
     Indication: ANKYLOSING SPONDYLITIS
     Dosage: 50 MG, ONCE WEEKLY
     Route: 058
     Dates: start: 20111005
  2. LOSARTAN [Concomitant]
     Indication: BLOOD PRESSURE
     Dosage: UNK
  3. VENLAFAXINE [Concomitant]
     Indication: DEPRESSION
     Dosage: UNK
  4. RIVOTRIL [Concomitant]
     Indication: SLEEP DISORDER
     Dosage: HALF TABLET STRENGTH 2MG ONCE A DAY
     Route: 048

REACTIONS (4)
  - Hypertension [Unknown]
  - Weight increased [Not Recovered/Not Resolved]
  - Fibromyalgia [Not Recovered/Not Resolved]
  - Osteoarthritis [Not Recovered/Not Resolved]
